FAERS Safety Report 16589521 (Version 2)
Quarter: 2019Q3

REPORT INFORMATION
  Report Type: Spontaneous
  Country: DE (occurrence: DE)
  Receive Date: 20190718
  Receipt Date: 20190731
  Transmission Date: 20191004
  Serious: Yes (Hospitalization, Other)
  Sender: FDA-Public Use
  Company Number: DE-ACCORD-138961

PATIENT
  Age: 71 Year
  Sex: Male
  Weight: 68 kg

DRUGS (8)
  1. PRAVASIN [Suspect]
     Active Substance: PRAVASTATIN SODIUM
     Indication: VASCULAR GRAFT
  2. ASPIRIN PROTECT [Concomitant]
     Active Substance: ASPIRIN
     Indication: VASCULAR GRAFT
     Dosage: 100, 1 TABLET DAILY
     Dates: start: 2003
  3. PRAVASTATIN SODIUM. [Suspect]
     Active Substance: PRAVASTATIN SODIUM
     Indication: PRODUCT USED FOR UNKNOWN INDICATION
     Dosage: TAKING IN THE LAST TWO YEARS
     Dates: end: 201904
  4. XUSAL [Concomitant]
     Active Substance: LEVOCETIRIZINE DIHYDROCHLORIDE
     Dosage: STRENGTH 0.5 MG,1 TABLET DAILY FOR ABOUT 10 YEARS
     Dates: start: 2009
  5. LISINOPRIL. [Suspect]
     Active Substance: LISINOPRIL
     Indication: VASCULAR GRAFT
     Dosage: STRENGTH 5 MG
     Dates: start: 2003, end: 2019
  6. JODID [Concomitant]
     Active Substance: IODINE
     Dosage: STRENGTH 200 UG, 1 TABLET DAILY
  7. TAMSULOSIN/TAMSULOSIN HYDROCHLORIDE [Concomitant]
     Dosage: STRENGTH 0.4 MG,FOR ABOUT 10 YEARS EVERY 2ND DAY 1 TABLET
     Dates: start: 2009
  8. PRAVASTATIN SODIUM. [Suspect]
     Active Substance: PRAVASTATIN SODIUM
     Indication: PRODUCT USED FOR UNKNOWN INDICATION
     Dosage: 1 TABLET DAILY
     Dates: start: 2003

REACTIONS (8)
  - Adverse reaction [Unknown]
  - Pollakiuria [Unknown]
  - Weight decreased [Unknown]
  - Chills [Unknown]
  - Dermatitis [Unknown]
  - Swelling face [Unknown]
  - Hypersensitivity [Unknown]
  - Blood pressure fluctuation [Unknown]
